FAERS Safety Report 19011744 (Version 2)
Quarter: 2021Q2

REPORT INFORMATION
  Report Type: Spontaneous
  Country: CA (occurrence: CA)
  Receive Date: 20210315
  Receipt Date: 20210510
  Transmission Date: 20210717
  Serious: Yes (Other)
  Sender: FDA-Public Use
  Company Number: CA-PFIZER INC-2020471011

PATIENT
  Age: 55 Year
  Sex: Female

DRUGS (2)
  1. RUXIENCE [Suspect]
     Active Substance: RITUXIMAB-PVVR
     Indication: POLYMYOSITIS
  2. RUXIENCE [Suspect]
     Active Substance: RITUXIMAB-PVVR
     Indication: MYASTHENIA GRAVIS
     Dosage: 1000 MG (AT WEEK 0 AND WEEK 2)
     Route: 041
     Dates: start: 20210205

REACTIONS (2)
  - Appendicitis [Unknown]
  - Off label use [Unknown]

NARRATIVE: CASE EVENT DATE: 20210205
